FAERS Safety Report 6893173-2 (Version None)
Quarter: 2010Q3

REPORT INFORMATION
  Report Type: 
  Country: None (occurrence: None)
  Receive Date: 20100731
  Receipt Date: 20090616
  Transmission Date: 20110219
  Serious: No
  Sender: FDA-Public Use
  Company Number: US-PFIZER INC-2009192979

PATIENT

DRUGS (1)
  1. AMLODIPINE BESYLATE [Suspect]
     Dosage: 5 MG, UNK

REACTIONS (2)
  - DIZZINESS [None]
  - DYSPEPSIA [None]
